FAERS Safety Report 7271495-3 (Version None)
Quarter: 2011Q1

REPORT INFORMATION
  Report Type: 
  Country: None (occurrence: None)
  Receive Date: 20110128
  Receipt Date: 20110128
  Transmission Date: 20110831
  Serious: Yes (Disabling)
  Sender: FDA-Public Use
  Company Number: None

PATIENT
  Age: 65 Year
  Sex: Female
  Weight: 56.246 kg

DRUGS (1)
  1. TERBINAFINE HYDROCHLORIDE [Suspect]
     Indication: ONYCHOMYCOSIS
     Dosage: 250 MG 1 TABLET DAILY
     Dates: start: 20091208

REACTIONS (2)
  - PRODUCT SUBSTITUTION ISSUE [None]
  - DYSGEUSIA [None]
